FAERS Safety Report 23138143 (Version 2)
Quarter: 2024Q4

REPORT INFORMATION
  Report Type: Report from Study
  Country: US (occurrence: US)
  Receive Date: 20231102
  Receipt Date: 20241007
  Transmission Date: 20250115
  Serious: Yes (Death)
  Sender: NOVARTIS
  Company Number: US-002147023-NVSC2023US234163

PATIENT
  Sex: Male

DRUGS (1)
  1. COSENTYX [Suspect]
     Active Substance: SECUKINUMAB
     Indication: Product used for unknown indication
     Dosage: UNK
     Route: 050

REACTIONS (1)
  - Alcohol poisoning [Fatal]
